FAERS Safety Report 9984045 (Version 1)
Quarter: 2014Q1

REPORT INFORMATION
  Report Type: Report from Study
  Country: US (occurrence: US)
  Receive Date: 20140307
  Receipt Date: 20140307
  Transmission Date: 20141002
  Serious: No
  Sender: FDA-Public Use
  Company Number: US-ABBVIE-13P-163-1183435-00

PATIENT
  Age: 56 Year
  Sex: Female

DRUGS (2)
  1. HUMIRA [Suspect]
     Indication: CROHN^S DISEASE
     Dates: start: 20130923
  2. WARFARIN [Concomitant]
     Indication: CEREBROVASCULAR ACCIDENT
     Dates: start: 201305

REACTIONS (2)
  - Flatulence [Not Recovered/Not Resolved]
  - Abdominal pain upper [Not Recovered/Not Resolved]
